FAERS Safety Report 16371760 (Version 1)
Quarter: 2019Q3

REPORT INFORMATION
  Report Type: Spontaneous
  Country: US (occurrence: US)
  Receive Date: 20190529
  Receipt Date: 20190529
  Transmission Date: 20191004
  Serious: Yes (Other)
  Sender: FDA-Public Use
  Company Number: None

PATIENT
  Age: 37 Year
  Sex: Female

DRUGS (1)
  1. INJECTAFER [Suspect]
     Active Substance: FERRIC CARBOXYMALTOSE
     Indication: ANAEMIA
     Dosage: ?          OTHER FREQUENCY:ONCE;?
     Route: 042
     Dates: start: 20190312, end: 20190312

REACTIONS (5)
  - Chest pain [None]
  - Back pain [None]
  - Flushing [None]
  - Swollen tongue [None]
  - Infusion related reaction [None]

NARRATIVE: CASE EVENT DATE: 20190312
